FAERS Safety Report 13331220 (Version 1)
Quarter: 2017Q1

REPORT INFORMATION
  Report Type: Spontaneous
  Country: CN (occurrence: CN)
  Receive Date: 20170314
  Receipt Date: 20170314
  Transmission Date: 20170428
  Serious: Yes (Other)
  Sender: FDA-Public Use
  Company Number: CN-JNJFOC-20170306396

PATIENT
  Age: 28 Year
  Sex: Female

DRUGS (4)
  1. TOPAMAX [Suspect]
     Active Substance: TOPIRAMATE
     Indication: EPILEPSY
     Dosage: 3 TABLETS IN MORNING 3 TABLETS IN EVENING EVERY DAY
     Route: 048
     Dates: start: 20170302
  2. TOPAMAX [Suspect]
     Active Substance: TOPIRAMATE
     Indication: EPILEPSY
     Dosage: TABLETS IN MORNING AND 2 TABLETS IN EVENING EVERY DAY
     Route: 048
     Dates: start: 2017, end: 2017
  3. TOPAMAX [Suspect]
     Active Substance: TOPIRAMATE
     Indication: EPILEPSY
     Dosage: 25MG*60??1 TABLET IN MORNING AND 1 TABLET IN EVENING EVERY DAY
     Route: 048
     Dates: start: 20170216, end: 201702
  4. SODIUM VALPROATE [Concomitant]
     Active Substance: VALPROATE SODIUM
     Indication: PRODUCT USED FOR UNKNOWN INDICATION
     Dosage: USED FOR 20 YEARS
     Route: 065

REACTIONS (5)
  - Petit mal epilepsy [Recovering/Resolving]
  - Epilepsy [Unknown]
  - Pyrexia [Recovered/Resolved]
  - Lymphadenopathy [Not Recovered/Not Resolved]
  - White blood cell count decreased [Unknown]

NARRATIVE: CASE EVENT DATE: 201702
